FAERS Safety Report 9214089 (Version 3)
Quarter: 2013Q3

REPORT INFORMATION
  Report Type: Report from Study
  Country: CN (occurrence: CN)
  Receive Date: 20130405
  Receipt Date: 20130712
  Transmission Date: 20140515
  Serious: Yes (Hospitalization, Other)
  Sender: FDA-Public Use
  Company Number: CN-PFIZER INC-2011245395

PATIENT
  Age: 34 Year
  Sex: Male
  Weight: 88 kg

DRUGS (8)
  1. TOFACITINIB CITRATE [Suspect]
     Indication: RHEUMATOID ARTHRITIS
     Dosage: 5 MG, 2X/DAY
     Route: 048
     Dates: start: 20101213, end: 20110925
  2. METHOTREXATE SODIUM [Suspect]
     Indication: RHEUMATOID ARTHRITIS
     Dosage: 10 MG, WEEKLY
     Route: 048
     Dates: start: 20100828
  3. SULFASALAZINE [Concomitant]
     Indication: RHEUMATOID ARTHRITIS
     Dosage: 1 G, 2X/DAY
     Route: 048
     Dates: start: 200810
  4. FOLIC ACID [Concomitant]
     Indication: RHEUMATOID ARTHRITIS
     Dosage: 5 MG, WEEKLY
     Route: 048
     Dates: start: 20091102
  5. PREDNISONE [Concomitant]
     Indication: RHEUMATOID ARTHRITIS
     Dosage: 10 MG, 1X/DAY
     Route: 048
     Dates: start: 201105
  6. ORNIDAZOLE [Concomitant]
     Indication: CALCULUS URETERIC
     Dosage: 0.25 G, 1X/DAY
     Route: 042
     Dates: start: 20110917, end: 20110925
  7. CEFMINOX [Concomitant]
     Indication: CALCULUS URETERIC
     Dosage: 6.0 G, 1X/DAY
     Route: 042
     Dates: start: 20110920, end: 20110925
  8. INDOMETACIN [Concomitant]
     Indication: GOUT
     Dosage: 0.1 G, 1X/DAY AT NIGHT
     Route: 048
     Dates: start: 20110917, end: 20110918

REACTIONS (2)
  - Gouty arthritis [Recovered/Resolved]
  - Appendicitis [Recovered/Resolved]
